FAERS Safety Report 7903275 (Version 4)
Quarter: 2015Q4

REPORT INFORMATION
  Report Type: Spontaneous
  Country: AU (occurrence: AU)
  Receive Date: 20110418
  Receipt Date: 20151013
  Transmission Date: 20160305
  Serious: Yes (Death, Other)
  Sender: FDA-Public Use
  Company Number: AU-PFIZER INC-2009312179

PATIENT
  Age: 39 Year
  Sex: Male

DRUGS (1)
  1. CHAMPIX [Suspect]
     Active Substance: VARENICLINE TARTRATE
     Indication: SMOKING CESSATION THERAPY
     Dosage: UNK
     Route: 048

REACTIONS (15)
  - Depression [Unknown]
  - Agitation [Unknown]
  - Irritability [Unknown]
  - Anxiety [Unknown]
  - Suicidal ideation [Unknown]
  - Mood swings [Unknown]
  - Paranoia [Unknown]
  - Nightmare [Unknown]
  - Aggression [Unknown]
  - Gambling [Unknown]
  - Completed suicide [Fatal]
  - Blood alcohol increased [Unknown]
  - Abnormal behaviour [Unknown]
  - Alcohol intolerance [Unknown]
  - Feeling abnormal [Unknown]

NARRATIVE: CASE EVENT DATE: 20091106
